FAERS Safety Report 5421685-7 (Version None)
Quarter: 2007Q3

REPORT INFORMATION
  Report Type: 
  Country: None (occurrence: None)
  Receive Date: 20070821
  Receipt Date: 20070820
  Transmission Date: 20080115
  Serious: Yes (Disabling, Other)
  Sender: FDA-Public Use
  Company Number: US-MERCK-0708USA00205

PATIENT
  Age: 70 Year
  Sex: Male
  Weight: 112 kg

DRUGS (9)
  1. JANUVIA [Suspect]
     Indication: TYPE 2 DIABETES MELLITUS
     Route: 048
     Dates: start: 20070101, end: 20070705
  2. GLUCOPHAGE [Concomitant]
     Route: 065
  3. ACTOS [Concomitant]
     Route: 065
     Dates: end: 20070807
  4. ALTACE [Concomitant]
     Route: 048
     Dates: start: 20060331
  5. LIPITOR [Concomitant]
     Route: 048
     Dates: start: 20070118
  6. LASIX [Concomitant]
     Route: 065
     Dates: start: 20060331
  7. NEXIUM [Concomitant]
     Route: 048
     Dates: start: 20070329
  8. MICARDIS [Concomitant]
     Route: 065
     Dates: start: 20060515
  9. TOPROL-XL [Concomitant]
     Route: 065
     Dates: start: 20060331

REACTIONS (1)
  - BLISTER [None]
